FAERS Safety Report 5811052-6 (Version None)
Quarter: 2008Q3

REPORT INFORMATION
  Report Type: 
  Country: None (occurrence: None)
  Receive Date: 20080716
  Receipt Date: 20080710
  Transmission Date: 20090109
  Serious: Yes (Death, Hospitalization)
  Sender: FDA-Public Use
  Company Number: GB-JNJFOC-20050602261

PATIENT
  Sex: Male
  Weight: 102 kg

DRUGS (3)
  1. IMODIUM [Suspect]
     Route: 048
     Dates: start: 20050503, end: 20050503
  2. IMODIUM [Suspect]
     Indication: DIARRHOEA
     Route: 048
     Dates: start: 20050503, end: 20050503
  3. ACETAMINOPHEN [Concomitant]
     Indication: MYALGIA
     Route: 048

REACTIONS (1)
  - ANAPHYLACTIC SHOCK [None]
